FAERS Safety Report 4352210-X (Version None)
Quarter: 2004Q2

REPORT INFORMATION
  Report Type: 
  Country: None (occurrence: None)
  Receive Date: 20040504
  Receipt Date: 20040422
  Transmission Date: 20050107
  Serious: Yes (Other)
  Sender: FDA-Public Use
  Company Number: PHRM2004FR01665

PATIENT
  Age: 60 Year
  Sex: Male

DRUGS (1)
  1. FRACTAL [Suspect]
     Indication: HYPERCHOLESTEROLAEMIA
     Dosage: 40 MG, QD
     Route: 048
     Dates: start: 20030501

REACTIONS (3)
  - BRONCHITIS [None]
  - GASTROINTESTINAL DISORDER [None]
  - PULMONARY FIBROSIS [None]
